FAERS Safety Report 9155555 (Version 3)
Quarter: 2013Q1

REPORT INFORMATION
  Report Type: Report from Study
  Country: US (occurrence: US)
  Receive Date: 20130311
  Receipt Date: 20130327
  Transmission Date: 20140127
  Serious: Yes (Congenital Anomaly)
  Sender: FDA-Public Use
  Company Number: US-GLAXOSMITHKLINE-A1015180A

PATIENT
  Sex: Male
  Weight: 2.8 kg

DRUGS (5)
  1. LOSARTAN [Suspect]
     Indication: PRODUCT USED FOR UNKNOWN INDICATION
     Route: 064
  2. TRIMETHOPRIM + SULFAMETHOXAZOLE [Suspect]
     Indication: PRODUCT USED FOR UNKNOWN INDICATION
     Route: 064
  3. RETROVIR [Suspect]
     Indication: ANTIVIRAL TREATMENT
     Route: 064
     Dates: start: 20120611, end: 20120611
  4. TRUVADA [Suspect]
     Indication: ANTIVIRAL TREATMENT
     Dosage: 1TAB PER DAY
     Route: 064
     Dates: start: 20111101
  5. KALETRA [Suspect]
     Indication: ANTIVIRAL TREATMENT
     Route: 064
     Dates: start: 20111101

REACTIONS (2)
  - Cleft lip and palate [Unknown]
  - Foetal exposure during pregnancy [Unknown]
